FAERS Safety Report 9132163 (Version 1)
Quarter: 2013Q1

REPORT INFORMATION
  Report Type: Spontaneous
  Country: US (occurrence: US)
  Receive Date: 20130301
  Receipt Date: 20130301
  Transmission Date: 20140127
  Serious: Yes (Other)
  Sender: FDA-Public Use
  Company Number: US-MYLANLABS-2012S1008823

PATIENT
  Age: 16 Year
  Sex: Female
  Weight: 63.5 kg

DRUGS (2)
  1. CLARAVIS [Suspect]
     Indication: ACNE
     Route: 048
     Dates: start: 20111209, end: 201204
  2. AMNESTEEM CAPSULES [Suspect]
     Indication: ACNE
     Route: 048
     Dates: start: 201204, end: 20120425

REACTIONS (3)
  - Ankle fracture [Recovering/Resolving]
  - Avulsion fracture [Recovering/Resolving]
  - Bone density decreased [Recovering/Resolving]
